FAERS Safety Report 19451746 (Version 1)
Quarter: 2021Q2

REPORT INFORMATION
  Report Type: Spontaneous
  Country: TR (occurrence: TR)
  Receive Date: 20210623
  Receipt Date: 20210623
  Transmission Date: 20210717
  Serious: Yes (Other)
  Sender: FDA-Public Use
  Company Number: TR-SUN PHARMACEUTICAL INDUSTRIES LTD-2021RR-301652

PATIENT
  Age: 52 Year
  Sex: Female

DRUGS (10)
  1. CISPLATIN. [Suspect]
     Active Substance: CISPLATIN
     Indication: THYROID CANCER
     Dosage: 20 MILLIGRAM/SQ. METER, WEEKLY
     Route: 065
  2. GEMCITABINE. [Suspect]
     Active Substance: GEMCITABINE
     Indication: THYROID CANCER
     Dosage: 2 CYCLES
     Route: 065
  3. PACLITAXEL. [Suspect]
     Active Substance: PACLITAXEL
     Indication: THYROID CANCER
     Dosage: 175 MILLIGRAM/SQ. METER, 1 DOSE/3 WEEKS
     Route: 065
  4. TRAMETINIB [Concomitant]
     Active Substance: TRAMETINIB
     Indication: THYROID CANCER
     Dosage: 2 MILLIGRAM, OD
     Route: 065
  5. CARBOPLATIN. [Suspect]
     Active Substance: CARBOPLATIN
     Indication: THYROID CANCER
     Dosage: UNK, EVERY 3 WEEKS
     Route: 065
  6. DOXORUBICIN [Suspect]
     Active Substance: DOXORUBICIN
     Indication: THYROID CANCER
     Dosage: 10 MILLIGRAM/SQ. METER, WEEKLY
     Route: 065
  7. CISPLATIN. [Suspect]
     Active Substance: CISPLATIN
     Dosage: 50 MILLIGRAM/SQ. METER, 3 CYCLES
     Route: 065
  8. DOXORUBICIN [Suspect]
     Active Substance: DOXORUBICIN
     Dosage: 50 MILLIGRAM/SQ. METER, 3 CYCLES
     Route: 065
  9. PACLITAXEL. [Suspect]
     Active Substance: PACLITAXEL
     Dosage: UNK, 2 CYCLES
     Route: 065
  10. DABRAFENIB [Concomitant]
     Active Substance: DABRAFENIB
     Indication: THYROID CANCER
     Dosage: 150 MILLIGRAM, BID
     Route: 065

REACTIONS (1)
  - Disease progression [Unknown]
